FAERS Safety Report 4913700-1 (Version None)
Quarter: 2006Q1

REPORT INFORMATION
  Report Type: 
  Country: None (occurrence: None)
  Receive Date: 20060210
  Receipt Date: 20060206
  Transmission Date: 20060701
  Serious: Yes (Hospitalization)
  Sender: FDA-Public Use
  Company Number: A0568192A

PATIENT
  Sex: Female

DRUGS (4)
  1. PAXIL [Suspect]
     Indication: ANXIETY
     Dosage: ORAL
     Route: 048
     Dates: start: 20010501, end: 20020103
  2. VICODIN [Concomitant]
  3. LORAZEPAM [Concomitant]
  4. ORAL CONTRACEPTIVE [Concomitant]

REACTIONS (16)
  - AKATHISIA [None]
  - ANXIETY [None]
  - DEPENDENCE [None]
  - DIZZINESS [None]
  - DRUG WITHDRAWAL SYNDROME [None]
  - HEART RATE INCREASED [None]
  - MARITAL PROBLEM [None]
  - MULTIPLE DRUG OVERDOSE [None]
  - MUSCLE SPASMS [None]
  - PANIC ATTACK [None]
  - RESPIRATORY DISORDER [None]
  - SOCIAL AVOIDANT BEHAVIOUR [None]
  - SUFFOCATION FEELING [None]
  - SUICIDAL IDEATION [None]
  - SUICIDE ATTEMPT [None]
  - TREMOR [None]
